FAERS Safety Report 8171067-2 (Version None)
Quarter: 2012Q1

REPORT INFORMATION
  Report Type: 
  Country: None (occurrence: None)
  Receive Date: 20120228
  Receipt Date: 20120216
  Transmission Date: 20120608
  Serious: Yes (Disabling, Other)
  Sender: FDA-Public Use
  Company Number: PHHY2011NZ88168

PATIENT
  Sex: Female

DRUGS (9)
  1. DILTIAZEM HCL [Concomitant]
  2. METOPROLOL [Concomitant]
  3. PAROXETINE [Concomitant]
     Dosage: 20 UKN, UNK
  4. PROMETHAZINE [Concomitant]
     Dosage: 25 UKN, UNK
  5. ISMN [Concomitant]
  6. CLOZARIL [Suspect]
     Indication: PSYCHOTIC DISORDER
     Dosage: 75 MG, NOCTE
     Route: 048
     Dates: start: 20030812, end: 20120103
  7. ACETAMINOPHEN [Concomitant]
     Dates: end: 20110101
  8. QUINAPRIL [Concomitant]
  9. OMEPRAZOLE [Concomitant]
     Dosage: 40 BD

REACTIONS (5)
  - GLUCOSE TOLERANCE IMPAIRED [None]
  - SYSTOLIC DYSFUNCTION [None]
  - EXERCISE TOLERANCE DECREASED [None]
  - RESTRICTIVE CARDIOMYOPATHY [None]
  - TROPONIN INCREASED [None]
